FAERS Safety Report 6252822-2 (Version None)
Quarter: 2009Q2

REPORT INFORMATION
  Report Type: 
  Country: None (occurrence: None)
  Receive Date: 20090629
  Receipt Date: 20090629
  Transmission Date: 20091009
  Serious: Yes (Other)
  Sender: FDA-Public Use
  Company Number: None

PATIENT
  Age: 43 Year
  Sex: Female
  Weight: 99.3377 kg

DRUGS (2)
  1. DOCETAXEL [Suspect]
     Indication: BREAST CANCER STAGE II
     Dosage: 155 MG IN D5W 250 ML Q21 DAYS IV DRIP
     Route: 041
     Dates: start: 20090604, end: 20090625
  2. DOCETAXEL [Suspect]

REACTIONS (3)
  - CHEST DISCOMFORT [None]
  - FLUSHING [None]
  - INFUSION RELATED REACTION [None]
